FAERS Safety Report 10231543 (Version 1)
Quarter: 2014Q2

REPORT INFORMATION
  Report Type: Spontaneous
  Country: US (occurrence: US)
  Receive Date: 20140611
  Receipt Date: 20140611
  Transmission Date: 20141212
  Serious: No
  Sender: FDA-Public Use
  Company Number: US-009507513-1406USA005577

PATIENT
  Age: 69 Year
  Sex: Female

DRUGS (4)
  1. JANUVIA [Suspect]
     Indication: TYPE 2 DIABETES MELLITUS
     Dosage: 100 MG, ONCE DAILY
     Route: 048
     Dates: start: 20140531, end: 20140607
  2. METFORMIN [Concomitant]
  3. LISINOPRIL [Concomitant]
  4. LIPITOR [Concomitant]

REACTIONS (4)
  - Oropharyngeal discomfort [Recovered/Resolved]
  - Dysphagia [Recovered/Resolved]
  - Blood glucose increased [Recovered/Resolved]
  - Headache [Recovered/Resolved]
